FAERS Safety Report 5227542-3 (Version None)
Quarter: 2007Q1

REPORT INFORMATION
  Report Type: 
  Country: None (occurrence: None)
  Receive Date: 20061201
  Receipt Date: 20061010
  Transmission Date: 20070707
  Serious: No
  Sender: FDA-Public Use
  Company Number: US200610002374

PATIENT
  Age: 36 Year
  Sex: Male

DRUGS (1)
  1. CYMBALTA [Suspect]
     Indication: BACK PAIN
     Dosage: 60 MG, ORAL
     Route: 048
     Dates: end: 20061006

REACTIONS (1)
  - SENSORY LOSS [None]
